FAERS Safety Report 8440004-5 (Version None)
Quarter: 2012Q2

REPORT INFORMATION
  Report Type: 
  Country: None (occurrence: None)
  Receive Date: 20120615
  Receipt Date: 20120612
  Transmission Date: 20120825
  Serious: Yes (Life-Threatening, Hospitalization, Other)
  Sender: FDA-Public Use
  Company Number: JP-EISAI INC-E2020-10829-SPO-JP

PATIENT
  Age: 84 Year
  Sex: Female
  Weight: 54.1 kg

DRUGS (22)
  1. CILOSTAZO [Concomitant]
     Route: 048
     Dates: end: 20120213
  2. LOXONIN [Concomitant]
     Route: 048
     Dates: end: 20120213
  3. ASPIRIN [Concomitant]
     Route: 048
     Dates: end: 20120213
  4. LANSOPRAZOLE [Concomitant]
     Route: 048
     Dates: end: 20120213
  5. TRIAZOLAM [Concomitant]
     Route: 048
     Dates: start: 20120218
  6. URSO 250 [Concomitant]
     Route: 048
     Dates: end: 20120213
  7. ISOSORBIDE MONONITRATE [Concomitant]
     Route: 048
     Dates: start: 20120218
  8. VENECTOMIN [Concomitant]
     Route: 048
  9. ARICEPT [Suspect]
     Indication: DEMENTIA ALZHEIMER'S TYPE
     Route: 048
     Dates: end: 20120213
  10. CALORYL [Concomitant]
     Route: 048
  11. LIVACT [Concomitant]
     Route: 048
     Dates: end: 20120213
  12. ASPIRIN [Concomitant]
     Route: 048
     Dates: start: 20120218
  13. LASIX [Concomitant]
     Route: 042
  14. VERAPAMIL HCL [Suspect]
     Indication: ATRIAL FIBRILLATION
     Route: 048
     Dates: end: 20120213
  15. URSO 250 [Concomitant]
     Route: 048
     Dates: start: 20120218
  16. ISOSORBIDE MONONITRATE [Concomitant]
     Route: 048
     Dates: end: 20120213
  17. TRIAZOLAM [Concomitant]
     Indication: INSOMNIA
     Route: 048
     Dates: end: 20120213
  18. MEDICON [Concomitant]
     Route: 048
  19. CILOSTAZO [Concomitant]
     Route: 048
     Dates: start: 20120218
  20. LIVACT [Concomitant]
     Route: 048
     Dates: start: 20120218
  21. LOXONIN [Concomitant]
     Route: 048
     Dates: start: 20120218
  22. LANSOPRAZOLE [Concomitant]
     Route: 048
     Dates: start: 20120218

REACTIONS (1)
  - LONG QT SYNDROME [None]
